FAERS Safety Report 9995419 (Version 2)
Quarter: 2014Q1

REPORT INFORMATION
  Report Type: Spontaneous
  Country: US (occurrence: US)
  Receive Date: 20140311
  Receipt Date: 20140311
  Transmission Date: 20141002
  Serious: Yes (Hospitalization)
  Sender: FDA-Public Use
  Company Number: US-DRREDDYS-USA/USA/13/0027667

PATIENT
  Age: 54 Year
  Sex: Male
  Weight: 113 kg

DRUGS (1)
  1. OMEPRAZOLE MAGNESIUM DELAYED RELEASE OTC [Suspect]
     Indication: DYSPEPSIA
     Route: 048
     Dates: start: 20130101, end: 20130106

REACTIONS (6)
  - Intestinal obstruction [Unknown]
  - Pneumonia [Unknown]
  - Pulmonary embolism [Unknown]
  - Malaise [Unknown]
  - Product solubility abnormal [Unknown]
  - Product quality issue [Unknown]
